FAERS Safety Report 11253628 (Version 1)
Quarter: 2015Q3

REPORT INFORMATION
  Report Type: Spontaneous
  Country: US (occurrence: None)
  Receive Date: 20150708
  Receipt Date: 20150708
  Transmission Date: 20151125
  Serious: Yes (Hospitalization)
  Sender: FDA-Public Use
  Company Number: None

PATIENT
  Age: 57 Year
  Sex: Male
  Weight: 61 kg

DRUGS (2)
  1. ERBITUX [Suspect]
     Active Substance: CETUXIMAB
     Dates: end: 20150626
  2. CAMPTOSAR [Suspect]
     Active Substance: IRINOTECAN HYDROCHLORIDE
     Dates: end: 20150626

REACTIONS (7)
  - Diarrhoea haemorrhagic [None]
  - Lethargy [None]
  - Headache [None]
  - Vomiting [None]
  - Nausea [None]
  - Abdominal pain [None]
  - Asthenia [None]

NARRATIVE: CASE EVENT DATE: 20150706
